FAERS Safety Report 23249430 (Version 1)
Quarter: 2023Q4

REPORT INFORMATION
  Report Type: Spontaneous
  Country: US (occurrence: US)
  Receive Date: 20231201
  Receipt Date: 20231201
  Transmission Date: 20240109
  Serious: Yes (Hospitalization)
  Sender: FDA-Public Use
  Company Number: US-STRIDES ARCOLAB LIMITED-2023SP014674

PATIENT
  Age: 63 Year
  Sex: Female

DRUGS (5)
  1. PREDNISOLONE [Suspect]
     Active Substance: PREDNISOLONE
     Indication: Rheumatoid arthritis
     Dosage: 15 MILLIGRAM, MONTHLY TAPER REGIMEN OF LOW-DOSE FROM 15MG TO 5MG FOR THE PAST THREE MONTHS AND HAD C
     Route: 048
  2. PREDNISOLONE [Suspect]
     Active Substance: PREDNISOLONE
     Dosage: 5 MILLIGRAM, MONTHLY TAPER REGIMEN OF LOW-DOSE FROM 15MG TO 5MG FOR THE PAST THREE MONTHS AND HAD CO
     Route: 048
  3. DULOXETINE [Concomitant]
     Active Substance: DULOXETINE
     Indication: Major depression
     Dosage: 60 MILLIGRAM, BID
     Route: 048
  4. BUSPIRONE [Concomitant]
     Active Substance: BUSPIRONE HYDROCHLORIDE
     Indication: Major depression
     Dosage: 10 MILLIGRAM, AT BED TIME; AT NIGHT
     Route: 048
  5. TRAZODONE [Concomitant]
     Active Substance: TRAZODONE HYDROCHLORIDE
     Indication: Major depression
     Dosage: 150 MILLIGRAM, AT BED TIME; AT NIGHT
     Route: 048

REACTIONS (2)
  - Substance-induced psychotic disorder [Recovered/Resolved]
  - Urinary tract infection [Unknown]
